FAERS Safety Report 11457058 (Version 4)
Quarter: 2016Q1

REPORT INFORMATION
  Report Type: Spontaneous
  Country: US (occurrence: US)
  Receive Date: 20150904
  Receipt Date: 20160205
  Transmission Date: 20160525
  Serious: No
  Sender: FDA-Public Use
  Company Number: US-LUPIN PHARMACEUTICALS INC.-2015-02252

PATIENT
  Age: 45 Year
  Sex: Female

DRUGS (1)
  1. BIMATOPROST OPHTHALMIC SOLUTION, 0.03% [Suspect]
     Active Substance: BIMATOPROST
     Indication: GLAUCOMA
     Dosage: 1 DROP ONCE DAILY
     Route: 047

REACTIONS (1)
  - Ocular hyperaemia [Unknown]
